FAERS Safety Report 6115414-1 (Version None)
Quarter: 2009Q1

REPORT INFORMATION
  Report Type: 
  Country: None (occurrence: None)
  Receive Date: 20090313
  Receipt Date: 20090305
  Transmission Date: 20090719
  Serious: Yes (Hospitalization)
  Sender: FDA-Public Use
  Company Number: JP-WYE-H08490309

PATIENT
  Age: 64 Year
  Sex: Male

DRUGS (10)
  1. ZOSYN [Suspect]
     Indication: PNEUMONIA BACTERIAL
     Route: 042
     Dates: start: 20090101, end: 20090101
  2. KINEDAK [Concomitant]
     Dosage: UNKNOWN
     Route: 048
  3. DIOVAN [Concomitant]
     Dosage: UNKNOWN
     Route: 048
  4. DIFLUCAN [Concomitant]
     Dosage: UNKNOWN
  5. LIPITOR [Concomitant]
     Dosage: UNKNOWN
     Route: 048
  6. STOGAR [Concomitant]
     Dosage: UNKNOWN
     Route: 048
  7. ATELEC [Concomitant]
     Dosage: UNKNOWN
     Route: 048
  8. FINIBAX [Suspect]
     Indication: PNEUMONIA BACTERIAL
     Dosage: UNKNOWN
     Route: 042
     Dates: start: 20090101, end: 20090101
  9. BAKTAR [Concomitant]
     Dosage: UNKNOWN
     Route: 048
  10. CYANOCOBALAMIN [Concomitant]
     Dosage: UNKNOWN

REACTIONS (1)
  - PNEUMONIA [None]
